FAERS Safety Report 5476606-8 (Version None)
Quarter: 2007Q4

REPORT INFORMATION
  Report Type: 
  Country: None (occurrence: None)
  Receive Date: 20071004
  Receipt Date: 20070928
  Transmission Date: 20080405
  Serious: Yes (Hospitalization)
  Sender: FDA-Public Use
  Company Number: PHEH2007US11299

PATIENT
  Age: 64 Year
  Sex: Female

DRUGS (2)
  1. LOTREL [Suspect]
     Dosage: 10/20 MG, QD
     Route: 048
  2. NORVASC [Concomitant]

REACTIONS (21)
  - ABDOMINAL PAIN [None]
  - ANGIOEDEMA [None]
  - BLOOD GLUCOSE INCREASED [None]
  - BLOOD POTASSIUM DECREASED [None]
  - BLOOD UREA DECREASED [None]
  - COLITIS [None]
  - DIARRHOEA [None]
  - DIARRHOEA HAEMORRHAGIC [None]
  - DIZZINESS [None]
  - DYSSTASIA [None]
  - GASTROINTESTINAL OEDEMA [None]
  - HAEMATOCHEZIA [None]
  - HAEMORRHAGE [None]
  - HYPOTENSION [None]
  - INTESTINAL CONGESTION [None]
  - LYMPHOCYTE COUNT DECREASED [None]
  - NAUSEA [None]
  - NEUTROPHIL COUNT INCREASED [None]
  - SMALL BOWEL ANGIOEDEMA [None]
  - VOMITING [None]
  - WHITE BLOOD CELL COUNT INCREASED [None]
